FAERS Safety Report 22671300 (Version 2)
Quarter: 2024Q1

REPORT INFORMATION
  Report Type: Spontaneous
  Country: US (occurrence: US)
  Receive Date: 20230705
  Receipt Date: 20240205
  Transmission Date: 20240410
  Serious: Yes (Other)
  Sender: FDA-Public Use
  Company Number: US-SA-2023SA194706

PATIENT
  Age: 53 Year
  Sex: Female

DRUGS (1)
  1. LIBTAYO [Suspect]
     Active Substance: CEMIPLIMAB-RWLC
     Indication: Squamous cell carcinoma of skin
     Dosage: UNK

REACTIONS (3)
  - Vogt-Koyanagi-Harada disease [Recovering/Resolving]
  - Cataract subcapsular [Recovering/Resolving]
  - Disease progression [Unknown]
